FAERS Safety Report 9601820 (Version 1)
Quarter: 2013Q4

REPORT INFORMATION
  Report Type: Spontaneous
  Country: JP (occurrence: None)
  Receive Date: 20131002
  Receipt Date: 20131002
  Transmission Date: 20140711
  Serious: Yes (Hospitalization)
  Sender: FDA-Public Use
  Company Number: ABR_01069_2013

PATIENT
  Age: 54 Year
  Sex: Male

DRUGS (1)
  1. GLIADEL [Suspect]
     Indication: MALIGNANT GLIOMA
     Dosage: 61.6 MG, 1X INTRACEREBRAL
     Dates: start: 20130726, end: 20130726

REACTIONS (3)
  - Brain oedema [None]
  - Aphasia [None]
  - Monoplegia [None]
